FAERS Safety Report 4649812-X (Version None)
Quarter: 2005Q3

REPORT INFORMATION
  Report Type: 
  Country: None (occurrence: None)
  Receive Date: 20050427
  Receipt Date: 20050414
  Transmission Date: 20060218
  Serious: Yes (Other)
  Sender: FDA-Public Use
  Company Number: CA-2005-005594

PATIENT
  Age: 34 Year
  Sex: Female

DRUGS (1)
  1. BETASERON [Suspect]
     Indication: MULTIPLE SCLEROSIS
     Dosage: 9.6 MIU, 3X/WEEK, SUBCUTANEOUS
     Route: 058
     Dates: start: 20041125, end: 20050411

REACTIONS (9)
  - CONVERSION DISORDER [None]
  - CRYING [None]
  - DIFFICULTY IN WALKING [None]
  - HALLUCINATION, AUDITORY [None]
  - MUSCLE SPASMS [None]
  - NAUSEA [None]
  - STRESS [None]
  - SUICIDAL IDEATION [None]
  - VOMITING [None]
